FAERS Safety Report 23586521 (Version 3)
Quarter: 2024Q1

REPORT INFORMATION
  Report Type: Spontaneous
  Country: GB (occurrence: GB)
  Receive Date: 20240301
  Receipt Date: 20240326
  Transmission Date: 20240409
  Serious: Yes (Death, Disabling, Other)
  Sender: FDA-Public Use
  Company Number: None

PATIENT
  Age: 90 Year
  Sex: Female
  Weight: 44 kg

DRUGS (9)
  1. XARELTO [Suspect]
     Active Substance: RIVAROXABAN
     Indication: Anticoagulant therapy
     Dosage: 15 MG, QD
     Route: 048
     Dates: start: 2019, end: 20231017
  2. METFORMIN HYDROCHLORIDE [Concomitant]
     Active Substance: METFORMIN HYDROCHLORIDE
     Dosage: THERAPY END DATE: //2023
     Dates: start: 2010
  3. FOSFOMYCIN TROMETHAMINE [Concomitant]
     Active Substance: FOSFOMYCIN TROMETHAMINE
     Indication: Urinary tract infection
     Dosage: 3 G, UNK
     Route: 048
  4. CALCIUM CARBONATE\CHOLECALCIFEROL [Concomitant]
     Active Substance: CALCIUM CARBONATE\CHOLECALCIFEROL
     Dosage: UNK?THERAPY END DATE: //2023
     Dates: start: 2010
  5. CREON [Concomitant]
     Active Substance: PANCRELIPASE AMYLASE\PANCRELIPASE LIPASE\PANCRELIPASE PROTEASE
     Dosage: THERAPY END DATE: //2023
     Dates: start: 2010
  6. BUMETANIDE [Concomitant]
     Active Substance: BUMETANIDE
     Dosage: THERAPY END DATE: //2023
     Dates: start: 2010
  7. BISOPROLOL [Concomitant]
     Active Substance: BISOPROLOL\BISOPROLOL FUMARATE
     Indication: Laxative supportive care
     Dosage: THERAPY END DATE: //2023
     Dates: start: 2010
  8. BUPRENORPHINE [Concomitant]
     Active Substance: BUPRENORPHINE
     Dosage: 5 UNK
  9. MORPHINE SULFATE [Concomitant]
     Active Substance: MORPHINE SULFATE
     Dosage: 10 UNK

REACTIONS (17)
  - Internal haemorrhage [Fatal]
  - Haemorrhage urinary tract [Not Recovered/Not Resolved]
  - Diabetes mellitus [Fatal]
  - Vascular dementia [Fatal]
  - Atrial fibrillation [Fatal]
  - Asthenia [Fatal]
  - Urinary tract infection [Not Recovered/Not Resolved]
  - Hypotension [Not Recovered/Not Resolved]
  - Pain [Not Recovered/Not Resolved]
  - Gait disturbance [Not Recovered/Not Resolved]
  - Fatigue [Not Recovered/Not Resolved]
  - Confusional state [Not Recovered/Not Resolved]
  - Sputum discoloured [Not Recovered/Not Resolved]
  - Abdominal discomfort [Not Recovered/Not Resolved]
  - Decreased appetite [Not Recovered/Not Resolved]
  - Housebound [Unknown]
  - Infection [Not Recovered/Not Resolved]

NARRATIVE: CASE EVENT DATE: 20230821
